FAERS Safety Report 4519847-6 (Version None)
Quarter: 2004Q4

REPORT INFORMATION
  Report Type: 
  Country: None (occurrence: None)
  Receive Date: 20041207
  Receipt Date: 20041201
  Transmission Date: 20050328
  Serious: Yes (Other)
  Sender: FDA-Public Use
  Company Number: PHBS2004NZ16033

PATIENT
  Age: 30 Year
  Sex: Male

DRUGS (1)
  1. CLOZARIL [Suspect]
     Dosage: 450 MG, QD
     Route: 048
     Dates: start: 20000717

REACTIONS (4)
  - BLOOD UREA INCREASED [None]
  - DIALYSIS [None]
  - HYPERCALCAEMIA [None]
  - RENAL FAILURE ACUTE [None]
